FAERS Safety Report 5460544-0 (Version None)
Quarter: 2007Q3

REPORT INFORMATION
  Report Type: 
  Country: None (occurrence: None)
  Receive Date: 20070919
  Receipt Date: 20070907
  Transmission Date: 20080115
  Serious: Yes (Life-Threatening)
  Sender: FDA-Public Use
  Company Number: TR-PFIZER INC-2006089388

PATIENT
  Sex: Male
  Weight: 60 kg

DRUGS (4)
  1. SU-011,248 [Suspect]
     Indication: METASTATIC RENAL CELL CARCINOMA
     Route: 048
     Dates: start: 20060626, end: 20060717
  2. SAW PALMETTO STANDARDIZED EXTRACT [Concomitant]
     Route: 048
  3. ETOFENAMATE [Concomitant]
     Dates: start: 20060621
  4. MELATONIN [Concomitant]
     Route: 048

REACTIONS (2)
  - HYPOXIA [None]
  - NECROTISING FASCIITIS [None]
